FAERS Safety Report 13334064 (Version 3)
Quarter: 2017Q2

REPORT INFORMATION
  Report Type: Spontaneous
  Country: CH (occurrence: CH)
  Receive Date: 20170314
  Receipt Date: 20170419
  Transmission Date: 20170830
  Serious: Yes (Hospitalization)
  Sender: FDA-Public Use
  Company Number: CH-PFIZER INC-2017101312

PATIENT
  Age: 66 Year
  Sex: Male
  Weight: 75.7 kg

DRUGS (32)
  1. VENLAFAXIN PFIZER [Suspect]
     Active Substance: VENLAFAXINE HYDROCHLORIDE
     Dosage: 150 MG, DAILY
     Dates: start: 20160307, end: 20160307
  2. ZYPREXA [Suspect]
     Active Substance: OLANZAPINE
     Dosage: 2.5 MG, DAILY
     Dates: start: 20160307, end: 20160307
  3. NEXIUM [Suspect]
     Active Substance: ESOMEPRAZOLE MAGNESIUM
     Dosage: 40 MG, DAILY
     Dates: start: 20160307, end: 20160307
  4. VENLAFAXIN PFIZER [Suspect]
     Active Substance: VENLAFAXINE HYDROCHLORIDE
     Dosage: 75-300 MG, DAILY
     Dates: start: 20160308
  5. ULTIBRO BREEZHALER [Suspect]
     Active Substance: GLYCOPYRRONIUM\INDACATEROL
     Dosage: 110 /50 UG (1-0-0-0)
     Route: 055
     Dates: start: 20160212, end: 20160212
  6. DIPROSALIC [Concomitant]
     Active Substance: BETAMETHASONE DIPROPIONATE
     Dosage: UNK, 1-0-0-0 WHOLE BODY, 1-0-0-1 BEARD
     Dates: start: 20160223
  7. VITAMIN B1 [Concomitant]
     Active Substance: THIAMINE HYDROCHLORIDE
     Dosage: 300 MG, 1X/DAY
     Dates: start: 201602, end: 20160307
  8. HALDOL [Suspect]
     Active Substance: HALOPERIDOL
     Dosage: 2MG/ML, 5-15/24H RESERVE
  9. ZYPREXA [Suspect]
     Active Substance: OLANZAPINE
     Dosage: 2.5-15 MG, DAILY
     Dates: start: 20160212, end: 20160306
  10. LAXOBERON [Suspect]
     Active Substance: SODIUM PICOSULFATE
     Dosage: 15 GTT ON 07MAR2016
     Dates: start: 20160307, end: 20160307
  11. FERRUM HAUSMANN /00023505/ [Concomitant]
     Dosage: 100 MG, 1X/DAY
     Dates: start: 20160219
  12. ATORVASTATIN PFIZER [Suspect]
     Active Substance: ATORVASTATIN
     Dosage: 40 MG, 1X/DAY
     Dates: start: 20160213
  13. ZYPREXA [Suspect]
     Active Substance: OLANZAPINE
     Dosage: 5 MG, (1-0-1-0)
     Dates: end: 20160210
  14. NEXIUM [Suspect]
     Active Substance: ESOMEPRAZOLE MAGNESIUM
     Dosage: 40-80 MG DAILY
     Dates: start: 20160308
  15. ACIDUM FOLICUM STREULI [Concomitant]
     Active Substance: FOLIC ACID
     Dosage: 5 MG, 1X/DAY
     Dates: start: 20160217
  16. LAXOBERON [Suspect]
     Active Substance: SODIUM PICOSULFATE
     Dosage: 15 GTT, UNK
  17. VENLAFAXIN PFIZER [Suspect]
     Active Substance: VENLAFAXINE HYDROCHLORIDE
     Dosage: 75-300 MG, DAILY
     Dates: start: 20160212, end: 20160306
  18. HALDOL [Suspect]
     Active Substance: HALOPERIDOL
     Dosage: 0.6 MG, DAILY
     Dates: start: 20160307, end: 20160307
  19. HALDOL [Suspect]
     Active Substance: HALOPERIDOL
     Dosage: 0.5-1.9 MG, DAILY
     Dates: start: 20160308, end: 20160410
  20. VITARUBIN /00056201/ [Concomitant]
     Dosage: 1000 UG, WEEKLY
     Dates: start: 20160218, end: 20160307
  21. VITARUBIN /00056201/ [Concomitant]
     Dosage: 1000 UG, UNK
     Dates: start: 20160307, end: 20160307
  22. TEMESTA [Suspect]
     Active Substance: LORAZEPAM
     Dosage: 1 MG ON 07MAR2016
     Dates: start: 20160307, end: 20160307
  23. TEMESTA [Suspect]
     Active Substance: LORAZEPAM
     Dosage: 0.25-2.5 MG , DAILY
     Dates: start: 20160308, end: 20160331
  24. ZYPREXA [Suspect]
     Active Substance: OLANZAPINE
     Dosage: 2.5-15 MG, DAILY
     Dates: start: 20160308
  25. CONCOR [Suspect]
     Active Substance: BISOPROLOL FUMARATE
     Dosage: 2.5 MG, 1X/DAY
     Dates: start: 20160212
  26. NEXIUM [Suspect]
     Active Substance: ESOMEPRAZOLE MAGNESIUM
     Dosage: 40-50 MG DAILY
     Dates: start: 20160216, end: 20160306
  27. MACROGOL SANDOZ [Suspect]
     Active Substance: POLYETHYLENE GLYCOLS
     Dosage: 1 SACHET DAILY
     Dates: start: 20160223, end: 20160401
  28. TEMESTA [Suspect]
     Active Substance: LORAZEPAM
     Dosage: 0.25-2.5 MG, DAILY
     Dates: start: 20160303, end: 20160306
  29. TORASEMID [Suspect]
     Active Substance: TORSEMIDE
     Dosage: 10 MG, 1X/DAY
     Dates: start: 20160212, end: 20160322
  30. ASPIRIN CARDIO [Suspect]
     Active Substance: ASPIRIN
     Dosage: 100 MG, 1X/DAY
     Dates: start: 20160213
  31. ULTIBRO BREEZHALER [Suspect]
     Active Substance: GLYCOPYRRONIUM\INDACATEROL
     Dosage: 110/50 UG, DAILY
     Dates: start: 20160213
  32. VITAMIN D3 WILD [Suspect]
     Active Substance: CHOLECALCIFEROL
     Dosage: 1500 IU, 1X/DAY
     Dates: start: 201602

REACTIONS (2)
  - Femur fracture [Recovered/Resolved with Sequelae]
  - Fall [Recovered/Resolved with Sequelae]

NARRATIVE: CASE EVENT DATE: 20160307
